FAERS Safety Report 6234138-3 (Version None)
Quarter: 2009Q2

REPORT INFORMATION
  Report Type: 
  Country: None (occurrence: None)
  Receive Date: 20090618
  Receipt Date: 20090609
  Transmission Date: 20091009
  Serious: Yes (Death)
  Sender: FDA-Public Use
  Company Number: US-BAYER-200911807NA

PATIENT
  Age: 52 Year
  Sex: Female

DRUGS (2)
  1. NEXAVAR [Suspect]
     Indication: THYROID CANCER
     Route: 048
     Dates: start: 20090120
  2. ADRIAMYCIN RDF [Concomitant]
     Dosage: 3 WEEKS ON, ONE WEEK OFF
     Route: 042
     Dates: start: 20081029, end: 20090113

REACTIONS (1)
  - DEATH [None]
